FAERS Safety Report 15646863 (Version 2)
Quarter: 2019Q1

REPORT INFORMATION
  Report Type: Report from Study
  Country: None (occurrence: DE)
  Receive Date: 20181122
  Receipt Date: 20190114
  Transmission Date: 20190417
  Serious: Yes (Other)
  Sender: FDA-Public Use
  Company Number: DE-ABBVIE-18K-062-2555971-00

PATIENT
  Age: 51 Year
  Sex: Female

DRUGS (7)
  1. COLESTYRAMINE [Concomitant]
     Active Substance: CHOLESTYRAMINE
     Indication: DIARRHOEA
     Dosage: AS REQUIRED
     Route: 048
     Dates: start: 20150213
  2. HUMIRA [Suspect]
     Active Substance: ADALIMUMAB
     Indication: CROHN^S DISEASE
     Route: 058
  3. IRON [Suspect]
     Active Substance: IRON
     Indication: BLOOD IRON DECREASED
     Route: 065
  4. FERINJECT [Concomitant]
     Active Substance: FERRIC CARBOXYMALTOSE
     Indication: ANAEMIA
     Route: 051
     Dates: start: 20171122, end: 20171122
  5. HUMIRA [Suspect]
     Active Substance: ADALIMUMAB
     Indication: CROHN^S DISEASE
     Route: 058
     Dates: start: 201608
  6. PANTOZOL [Concomitant]
     Active Substance: PANTOPRAZOLE SODIUM
     Indication: ABDOMINAL PAIN UPPER
     Dosage: AS REQUIRED
     Route: 048
     Dates: start: 20170914
  7. PENICILLIN [Suspect]
     Active Substance: PENICILLIN
     Indication: BRONCHITIS
     Route: 065
     Dates: start: 20181101, end: 20181112

REACTIONS (13)
  - Systemic lupus erythematosus [Recovering/Resolving]
  - Bronchitis [Recovering/Resolving]
  - Drug intolerance [Recovered/Resolved]
  - Rash [Recovering/Resolving]
  - Blood iron decreased [Unknown]
  - Swelling [Not Recovered/Not Resolved]
  - Erythema [Not Recovered/Not Resolved]
  - Neck pain [Unknown]
  - Pruritus [Recovered/Resolved]
  - Rash macular [Unknown]
  - Gait disturbance [Recovered/Resolved]
  - Feeling hot [Not Recovered/Not Resolved]
  - Pain [Not Recovered/Not Resolved]

NARRATIVE: CASE EVENT DATE: 201711
